FAERS Safety Report 23093179 (Version 1)
Quarter: 2023Q4

REPORT INFORMATION
  Report Type: Spontaneous
  Country: CN (occurrence: CN)
  Receive Date: 20231022
  Receipt Date: 20231022
  Transmission Date: 20240109
  Serious: Yes (Life-Threatening, Hospitalization, Other)
  Sender: FDA-Public Use
  Company Number: CN-SANDOZ-SDZ2023CN041128

PATIENT
  Age: 54 Year
  Sex: Female
  Weight: 60 kg

DRUGS (1)
  1. SUGAMMADEX SODIUM [Suspect]
     Active Substance: SUGAMMADEX SODIUM
     Indication: Neuromuscular blockade reversal
     Dosage: UNK
     Route: 065
     Dates: start: 20230519, end: 20230519

REACTIONS (2)
  - Postoperative respiratory failure [Recovered/Resolved]
  - Recurrence of neuromuscular blockade [Unknown]

NARRATIVE: CASE EVENT DATE: 20230519
